FAERS Safety Report 9302144 (Version 1)
Quarter: 2013Q2

REPORT INFORMATION
  Report Type: Spontaneous
  Country: IL (occurrence: IL)
  Receive Date: 20130522
  Receipt Date: 20130522
  Transmission Date: 20140414
  Serious: Yes (Other)
  Sender: FDA-Public Use
  Company Number: IL-B.I. PHARMACEUTICALS,INC./RIDGEFIELD-2013-AP-00324RI

PATIENT
  Age: 79 Year
  Sex: Male

DRUGS (8)
  1. PRADAXA [Suspect]
     Indication: ATRIAL FIBRILLATION
     Dosage: 220 MG
     Route: 048
     Dates: start: 201301, end: 201301
  2. LIPITOR [Concomitant]
  3. EZETROL [Concomitant]
  4. LERCAPRESS [Concomitant]
  5. TAMBOCOR [Concomitant]
  6. TRITACE [Concomitant]
  7. RAMIPRIL PLUS [Concomitant]
  8. XALATAN DROPS [Concomitant]

REACTIONS (1)
  - Cognitive disorder [Recovered/Resolved]
